FAERS Safety Report 15166555 (Version 1)
Quarter: 2018Q3

REPORT INFORMATION
  Report Type: Spontaneous
  Country: US (occurrence: US)
  Receive Date: 20180719
  Receipt Date: 20180719
  Transmission Date: 20181010
  Serious: Yes (Other)
  Sender: FDA-Public Use
  Company Number: US-OTSUKA-2018_016724

PATIENT
  Age: 52 Year
  Sex: Female

DRUGS (4)
  1. EFFEXOR [Concomitant]
     Active Substance: VENLAFAXINE HYDROCHLORIDE
     Indication: PRODUCT USED FOR UNKNOWN INDICATION
     Dosage: UNK
     Route: 065
  2. REXULTI [Suspect]
     Active Substance: BREXPIPRAZOLE
     Indication: BIPOLAR DISORDER
     Dosage: UNK
     Route: 065
     Dates: start: 2018
  3. REXULTI [Suspect]
     Active Substance: BREXPIPRAZOLE
     Indication: PERSONALITY DISORDER
  4. XANAX [Concomitant]
     Active Substance: ALPRAZOLAM
     Indication: ANXIETY
     Dosage: UNK
     Route: 065

REACTIONS (8)
  - Agitation [Unknown]
  - Disease recurrence [Unknown]
  - Drug effective for unapproved indication [Unknown]
  - Inability to afford medication [Unknown]
  - Depression [Unknown]
  - Drug dose omission [Unknown]
  - Suicidal ideation [Unknown]
  - Crying [Unknown]
